FAERS Safety Report 4314314-7 (Version None)
Quarter: 2004Q1

REPORT INFORMATION
  Report Type: 
  Country: None (occurrence: None)
  Receive Date: 20040309
  Receipt Date: 20030407
  Transmission Date: 20041129
  Serious: Yes (Disabling, Other)
  Sender: FDA-Public Use
  Company Number: WAES 0304USA00753

PATIENT
  Age: 51 Year
  Sex: Male
  Weight: 118 kg

DRUGS (7)
  1. ZYRTEC [Concomitant]
     Dates: start: 19950101
  2. CELEXA [Concomitant]
     Dates: start: 19990101
  3. INDOCIN [Concomitant]
     Route: 048
     Dates: start: 19820101
  4. NAPROXEN [Concomitant]
     Dates: start: 19820101
  5. PRILOSEC [Concomitant]
  6. ACIPHEX [Concomitant]
     Dates: start: 19990101
  7. VIOXX [Suspect]
     Indication: OSTEOARTHRITIS
     Route: 048
     Dates: start: 20000201

REACTIONS (17)
  - ACUTE MYOCARDIAL INFARCTION [None]
  - ARTHRALGIA [None]
  - ASTHENIA [None]
  - CARDIAC DISORDER [None]
  - CORONARY ARTERY DISEASE [None]
  - DILATATION VENTRICULAR [None]
  - EJECTION FRACTION DECREASED [None]
  - FALL [None]
  - INJURY [None]
  - LACERATION [None]
  - MUSCULAR WEAKNESS [None]
  - PAIN [None]
  - ROAD TRAFFIC ACCIDENT [None]
  - ROTATOR CUFF SYNDROME [None]
  - SCAPULA FRACTURE [None]
  - SKIN LACERATION [None]
  - SLEEP DISORDER DUE TO GENERAL MEDICAL CONDITION, INSOMNIA TYPE [None]
